FAERS Safety Report 16801083 (Version 2)
Quarter: 2019Q3

REPORT INFORMATION
  Report Type: Spontaneous
  Country: CZ (occurrence: CZ)
  Receive Date: 20190912
  Receipt Date: 20190923
  Transmission Date: 20191005
  Serious: Yes (Death)
  Sender: FDA-Public Use
  Company Number: CZ-EXELIXIS-CABO-19023671

PATIENT
  Sex: Female

DRUGS (6)
  1. BETALOC ZOK [Concomitant]
     Active Substance: METOPROLOL SUCCINATE
     Dosage: UNK
  2. TARDYFERON [Concomitant]
     Active Substance: FERROUS SULFATE
     Dosage: UNK
  3. CABOMETYX [Suspect]
     Active Substance: CABOZANTINIB S-MALATE
     Dosage: 40 MG
     Route: 048
     Dates: start: 201812
  4. HELICID [Concomitant]
     Active Substance: OMEPRAZOLE
     Dosage: UNK
  5. CABOMETYX [Suspect]
     Active Substance: CABOZANTINIB S-MALATE
     Indication: RENAL CANCER METASTATIC
     Dosage: 60 MG
     Route: 048
     Dates: start: 20181101, end: 201811
  6. NIVOLUMAB [Suspect]
     Active Substance: NIVOLUMAB
     Indication: RENAL CANCER METASTATIC
     Dosage: UNK
     Dates: start: 201906

REACTIONS (7)
  - Hypotension [Unknown]
  - Hypertension [Unknown]
  - Malignant neoplasm progression [Unknown]
  - Death [Fatal]
  - Ischaemic cardiomyopathy [Unknown]
  - Transient ischaemic attack [Unknown]
  - Haemoglobin increased [Unknown]

NARRATIVE: CASE EVENT DATE: 201811
